FAERS Safety Report 7606262-1 (Version None)
Quarter: 2011Q3

REPORT INFORMATION
  Report Type: 
  Country: None (occurrence: None)
  Receive Date: 20110713
  Receipt Date: 20110701
  Transmission Date: 20111222
  Serious: Yes (Hospitalization, Other)
  Sender: FDA-Public Use
  Company Number: US-BAYER-2011-039517

PATIENT
  Age: 24 Year
  Sex: Female
  Weight: 66.667 kg

DRUGS (3)
  1. MIRENA [Suspect]
     Indication: CONTRACEPTION
     Dosage: 20 ?G, CONT
     Route: 015
     Dates: start: 20110416, end: 20110422
  2. MIRENA [Suspect]
     Dosage: UNK
     Dates: start: 20110428
  3. BEYAZ [Concomitant]

REACTIONS (12)
  - ABORTION INFECTED [None]
  - SOFT TISSUE NECROSIS [None]
  - PELVIC PAIN [None]
  - VAGINAL HAEMORRHAGE [None]
  - DEVICE DISLOCATION [None]
  - ENDOMETRITIS [None]
  - TACHYCARDIA [None]
  - ATROPHIC VULVOVAGINITIS [None]
  - DEVICE EXPULSION [None]
  - DEVICE ISSUE [None]
  - ABDOMINAL PAIN [None]
  - PYREXIA [None]
